FAERS Safety Report 23850457 (Version 2)
Quarter: 2024Q2

REPORT INFORMATION
  Report Type: Report from Study
  Country: US (occurrence: US)
  Receive Date: 20240513
  Receipt Date: 20240531
  Transmission Date: 20240715
  Serious: Yes (Life-Threatening, Hospitalization, Other)
  Sender: FDA-Public Use
  Company Number: US-ARGENX-2024-ARGX-US003132

PATIENT

DRUGS (4)
  1. VYVGART [Suspect]
     Active Substance: EFGARTIGIMOD ALFA-FCAB
     Indication: Myasthenia gravis
     Dosage: 780 MG, ONCE WEEKLY FOR 4 WEEK
     Route: 042
     Dates: start: 202312
  2. VYVGART [Suspect]
     Active Substance: EFGARTIGIMOD ALFA-FCAB
     Dosage: 780 MG, ONCE WEEKLY FOR 4 WEEK
     Route: 042
     Dates: start: 20240215
  3. SODIUM CHLORIDE [Concomitant]
     Active Substance: SODIUM CHLORIDE
     Indication: Product used for unknown indication
     Dosage: UNK, 100ML/BAG, SOD CHLOR POSIFLUSH (10ML
     Route: 065
  4. EPINEPHRINE [Concomitant]
     Active Substance: EPINEPHRINE
     Indication: Product used for unknown indication
     Dosage: UNK, AUTO-INJ
     Route: 065

REACTIONS (7)
  - Pneumonia [Unknown]
  - Dysarthria [Unknown]
  - Dyspnoea [Unknown]
  - Hospitalisation [Unknown]
  - Myasthenia gravis [Unknown]
  - Depression [Unknown]
  - Intentional dose omission [Unknown]

NARRATIVE: CASE EVENT DATE: 20240201
